FAERS Safety Report 7328002-6 (Version None)
Quarter: 2011Q1

REPORT INFORMATION
  Report Type: 
  Country: None (occurrence: None)
  Receive Date: 20110303
  Receipt Date: 20110222
  Transmission Date: 20110831
  Serious: No
  Sender: FDA-Public Use
  Company Number: US-JNJFOC-20110207416

PATIENT
  Sex: Female

DRUGS (1)
  1. DURAGESIC-50 [Suspect]
     Indication: PAIN
     Route: 065

REACTIONS (1)
  - DRUG PRESCRIBING ERROR [None]
